FAERS Safety Report 13347458 (Version 1)
Quarter: 2017Q1

REPORT INFORMATION
  Report Type: Spontaneous
  Country: DE (occurrence: DE)
  Receive Date: 20170317
  Receipt Date: 20170317
  Transmission Date: 20170428
  Serious: Yes (Other)
  Sender: FDA-Public Use
  Company Number: DE-BIOGEN-2017BI00372693

PATIENT
  Sex: Female
  Weight: 65 kg

DRUGS (1)
  1. PLEGRIDY [Suspect]
     Active Substance: PEGINTERFERON BETA-1A
     Indication: RELAPSING-REMITTING MULTIPLE SCLEROSIS
     Route: 058
     Dates: start: 201501, end: 201702

REACTIONS (4)
  - Leukopenia [Unknown]
  - CD4 lymphocytes decreased [Unknown]
  - Lymphopenia [Unknown]
  - Immunodeficiency [Unknown]
